FAERS Safety Report 9647823 (Version 1)
Quarter: 2013Q4

REPORT INFORMATION
  Report Type: Spontaneous
  Country: FR (occurrence: FR)
  Receive Date: 20131028
  Receipt Date: 20131028
  Transmission Date: 20140711
  Serious: Yes (Hospitalization)
  Sender: FDA-Public Use
  Company Number: FR-JNJFOC-20131014013

PATIENT
  Age: 65 Year
  Sex: Female

DRUGS (1)
  1. DOXORUBICIN HYDROCHLORIDE (CAELYX) [Suspect]
     Indication: BREAST CANCER METASTATIC
     Route: 042
     Dates: start: 20130819, end: 20130819

REACTIONS (1)
  - Pancreatitis acute [Not Recovered/Not Resolved]
